FAERS Safety Report 21458467 (Version 1)
Quarter: 2022Q4

REPORT INFORMATION
  Report Type: Spontaneous
  Country: US (occurrence: US)
  Receive Date: 20221014
  Receipt Date: 20221014
  Transmission Date: 20230113
  Serious: No
  Sender: FDA-Public Use
  Company Number: US-TAKEDA-2022TUS073327

PATIENT

DRUGS (1)
  1. ALUNBRIG [Suspect]
     Active Substance: BRIGATINIB
     Indication: Product used for unknown indication
     Dosage: 90 MILLIGRAM
     Route: 065

REACTIONS (3)
  - No adverse event [Unknown]
  - Insurance issue [Unknown]
  - Product dose omission issue [Unknown]
